FAERS Safety Report 6087249-X (Version None)
Quarter: 2009Q1

REPORT INFORMATION
  Report Type: 
  Country: None (occurrence: None)
  Receive Date: 20090219
  Receipt Date: 20090219
  Transmission Date: 20090719
  Serious: No
  Sender: FDA-Public Use
  Company Number: None

PATIENT
  Age: 18 Year
  Sex: Male
  Weight: 90.7194 kg

DRUGS (6)
  1. HALOPERIDOL [Suspect]
     Dosage: 10MG DAY PO
     Route: 048
  2. LORAZEPAM [Concomitant]
  3. ZYPREXA [Concomitant]
  4. DEPAKOTE [Concomitant]
  5. .. [Concomitant]
  6. LORAZEPAM [Concomitant]

REACTIONS (2)
  - BACK PAIN [None]
  - MUSCULOSKELETAL STIFFNESS [None]
